FAERS Safety Report 5053301-0 (Version None)
Quarter: 2006Q3

REPORT INFORMATION
  Report Type: 
  Country: None (occurrence: None)
  Receive Date: 20060712
  Receipt Date: 20060626
  Transmission Date: 20061208
  Serious: Yes (Death)
  Sender: FDA-Public Use
  Company Number: DSA_28385_2006

PATIENT
  Age: 39 Year
  Sex: Male

DRUGS (6)
  1. TAVOR [Suspect]
     Dosage: 3 MG QD PO
     Route: 048
     Dates: start: 20060319, end: 20060411
  2. ZYPREXA [Suspect]
     Dosage: 20 MG QD PO
     Route: 048
     Dates: start: 20060319, end: 20060411
  3. POLAMIDON [Concomitant]
  4. LANITOP [Concomitant]
  5. ISOKET [Concomitant]
  6. HCT [Concomitant]

REACTIONS (7)
  - ARRHYTHMIA [None]
  - CARDIAC FAILURE [None]
  - CARDIAC VALVE DISEASE [None]
  - DEEP VEIN THROMBOSIS [None]
  - INFECTION [None]
  - PULMONARY EMBOLISM [None]
  - SEPSIS [None]
